FAERS Safety Report 10506318 (Version 2)
Quarter: 2014Q4

REPORT INFORMATION
  Report Type: Spontaneous
  Country: BR (occurrence: BR)
  Receive Date: 20141009
  Receipt Date: 20141120
  Transmission Date: 20150528
  Serious: Yes (Other)
  Sender: FDA-Public Use
  Company Number: BR-PFIZER INC-2014271510

PATIENT
  Age: 56 Year
  Sex: Female
  Weight: 68 kg

DRUGS (10)
  1. LOSARTAN [Concomitant]
     Active Substance: LOSARTAN
     Indication: HYPERTENSION
     Dosage: 2 TABLETS (100 MG), 1X/DAY (IN BREAKFAST)
  2. SEAKALM [Concomitant]
     Dosage: UNK
     Dates: start: 2012
  3. TIMOPTOL [Suspect]
     Active Substance: TIMOLOL
     Indication: GLAUCOMA
     Dosage: 1 DF, 1 DROP IN EACH EYE
     Route: 047
     Dates: start: 2004
  4. FLUOXETINE [Concomitant]
     Active Substance: FLUOXETINE\FLUOXETINE HYDROCHLORIDE
     Indication: ANXIETY
     Dosage: 1 DF, 1 TABLET CONTINUOUS
     Dates: start: 201406
  5. HIDROCLOROTIAZIDA [Concomitant]
     Active Substance: HYDROCHLOROTHIAZIDE
     Indication: FLUID RETENTION
     Dosage: 25 MG, 1 TABLET IN THE BREAKFAST
     Dates: start: 2012
  6. LUFTAL [Concomitant]
     Indication: PHYSICAL EXAMINATION
     Dosage: UNK
     Dates: start: 201406
  7. XALATAN [Suspect]
     Active Substance: LATANOPROST
     Indication: GLAUCOMA
     Dosage: ONE DROP IN EACH EYE (3 ?G), 1X/DAY (AT NIGHT)
     Route: 047
     Dates: start: 2004
  8. OMEPRAZOL [Concomitant]
     Active Substance: OMEPRAZOLE
     Indication: GASTROINTESTINAL DISORDER
     Dosage: UNK
     Dates: start: 201406
  9. HIDROCLOROTIAZIDA [Concomitant]
     Active Substance: HYDROCHLOROTHIAZIDE
     Indication: HYPERTENSION
  10. SIMVASTATIN. [Concomitant]
     Active Substance: SIMVASTATIN
     Indication: BLOOD CHOLESTEROL
     Dosage: 2 TABLETS (TOTAL OF 40 MG), 1X/DAY (AT NIGHT)

REACTIONS (11)
  - Corneal disorder [Recovered/Resolved]
  - Agitation [Recovered/Resolved]
  - Optic nerve disorder [Recovered/Resolved]
  - Skin haemorrhage [Recovered/Resolved]
  - Feeling abnormal [Recovered/Resolved]
  - Insomnia [Recovered/Resolved]
  - Urticaria [Recovered/Resolved]
  - Formication [Recovered/Resolved]
  - Drug ineffective [Recovered/Resolved]
  - Nasopharyngitis [Recovered/Resolved]
  - Hypertension [Recovered/Resolved]

NARRATIVE: CASE EVENT DATE: 2012
